FAERS Safety Report 7261147-8 (Version None)
Quarter: 2011Q1

REPORT INFORMATION
  Report Type: 
  Country: None (occurrence: None)
  Receive Date: 20110130
  Receipt Date: 20100910
  Transmission Date: 20110831
  Serious: No
  Sender: FDA-Public Use
  Company Number: US-ABBOTT-10P-163-0670384-00

PATIENT
  Age: 37 Year
  Sex: Male

DRUGS (11)
  1. AMITRIPTYLINE HCL [Concomitant]
     Indication: DEPRESSION
     Dosage: AT BEDTIME
  2. ASPIRIN [Concomitant]
     Indication: CARDIAC DISORDER
  3. WELLBUTRIN SR [Concomitant]
     Indication: DEPRESSION
  4. ZIAC [Concomitant]
     Indication: HYPERTENSION
     Dosage: 5-6 DAILY
  5. MORPHINE SULFATE [Concomitant]
     Indication: PAIN
  6. SALSALATE [Concomitant]
     Indication: PRODUCT USED FOR UNKNOWN INDICATION
  7. HUMIRA [Suspect]
     Indication: ANKYLOSING SPONDYLITIS
     Dates: start: 20100901
  8. CAPTOPRIL AND HYDROCHLOROTHIAZIDE [Concomitant]
     Indication: HYPERTENSION
     Dosage: 50/15MG DAILY
  9. PRILOSEC [Concomitant]
     Indication: DYSPEPSIA
  10. CYMBALTA [Concomitant]
     Indication: DEPRESSION
  11. MS CONTIN [Concomitant]
     Indication: PRODUCT USED FOR UNKNOWN INDICATION

REACTIONS (2)
  - ORAL HERPES [None]
  - DEVICE MALFUNCTION [None]
